FAERS Safety Report 13258590 (Version 3)
Quarter: 2017Q1

REPORT INFORMATION
  Report Type: Spontaneous
  Country: CA (occurrence: CA)
  Receive Date: 20170222
  Receipt Date: 20170314
  Transmission Date: 20170428
  Serious: Yes (Other)
  Sender: FDA-Public Use
  Company Number: CA-CONCORDIA PHARMACEUTICALS INC.-GSH201702-001208

PATIENT
  Sex: Female

DRUGS (12)
  1. ADALIMUMAB [Concomitant]
     Active Substance: ADALIMUMAB
     Dates: start: 201607
  2. METHOTREXATE. [Concomitant]
     Active Substance: METHOTREXATE
     Indication: RHEUMATOID ARTHRITIS
  3. SULFASALAZINE. [Concomitant]
     Active Substance: SULFASALAZINE
     Indication: RHEUMATOID ARTHRITIS
  4. TYLENOL [Concomitant]
     Active Substance: ACETAMINOPHEN
  5. ACTEMRA [Concomitant]
     Active Substance: TOCILIZUMAB
  6. ETANERCEPT [Concomitant]
     Active Substance: ETANERCEPT
     Dates: start: 201411, end: 201506
  7. ENBREL [Concomitant]
     Active Substance: ETANERCEPT
     Indication: RHEUMATOID ARTHRITIS
     Dates: start: 201411, end: 201506
  8. HYDROXYCHLOROQUINE [Suspect]
     Active Substance: HYDROXYCHLOROQUINE
     Indication: RHEUMATOID ARTHRITIS
     Route: 048
  9. ELMIRON [Concomitant]
     Active Substance: PENTOSAN POLYSULFATE SODIUM
  10. SYNTHROID [Concomitant]
     Active Substance: LEVOTHYROXINE SODIUM
  11. PANTOLOC [Concomitant]
     Active Substance: PANTOPRAZOLE SODIUM
  12. ABATACEPT [Concomitant]
     Active Substance: ABATACEPT
     Dates: start: 201508, end: 201607

REACTIONS (3)
  - Respiratory tract infection [Recovered/Resolved]
  - Headache [Unknown]
  - Pyrexia [Unknown]

NARRATIVE: CASE EVENT DATE: 20170227
